FAERS Safety Report 7581072-2 (Version None)
Quarter: 2011Q2

REPORT INFORMATION
  Report Type: 
  Country: None (occurrence: None)
  Receive Date: 20110629
  Receipt Date: 20110623
  Transmission Date: 20111010
  Serious: Yes (Death, Other)
  Sender: FDA-Public Use
  Company Number: PHHY2011AU56892

PATIENT
  Age: 30 Year

DRUGS (6)
  1. OXYCODONE HCL [Suspect]
     Dosage: UNK
  2. DIAZEPAM [Suspect]
  3. NORDAZEPAM [Suspect]
  4. BUPRENORPHINE [Suspect]
     Dosage: UNK
  5. METHADONE HCL [Suspect]
     Dosage: UNK
  6. METAMFETAMINE [Suspect]
     Dosage: UNK

REACTIONS (7)
  - ARTERIOSCLEROSIS CORONARY ARTERY [None]
  - MENTAL DISORDER [None]
  - HEPATITIS C [None]
  - ACUTE MYOCARDIAL INFARCTION [None]
  - MYOCARDIAL ISCHAEMIA [None]
  - ACCIDENTAL POISONING [None]
  - ABNORMAL BEHAVIOUR [None]
